FAERS Safety Report 6267186-8 (Version None)
Quarter: 2009Q3

REPORT INFORMATION
  Report Type: 
  Country: None (occurrence: None)
  Receive Date: 20090710
  Receipt Date: 20090629
  Transmission Date: 20100115
  Serious: Yes (Disabling, Other)
  Sender: FDA-Public Use
  Company Number: 2009AL004407

PATIENT
  Age: 15 Year
  Sex: Female

DRUGS (5)
  1. GABAPENTIN [Suspect]
     Indication: COMPLEX REGIONAL PAIN SYNDROME
     Dosage: 600 MG; TID; PO
     Route: 048
     Dates: start: 20021201, end: 20070901
  2. CLONAZEPAM [Concomitant]
  3. KETOROLAC TROMETHAMINE [Concomitant]
  4. LIDOCAINE [Concomitant]
  5. BRETYLIUM [Concomitant]

REACTIONS (2)
  - BLINDNESS [None]
  - VISION BLURRED [None]
